FAERS Safety Report 10379363 (Version 1)
Quarter: 2014Q3

REPORT INFORMATION
  Report Type: Spontaneous
  Country: ES (occurrence: ES)
  Receive Date: 20140812
  Receipt Date: 20140812
  Transmission Date: 20150326
  Serious: Yes (Other)
  Sender: FDA-Public Use
  Company Number: ES-SA-2014SA101462

PATIENT
  Age: 56 Year
  Sex: Female
  Weight: 40 kg

DRUGS (2)
  1. RENAGEL [Suspect]
     Active Substance: SEVELAMER HYDROCHLORIDE
     Indication: PRODUCT USED FOR UNKNOWN INDICATION
     Route: 065
     Dates: start: 20140723, end: 20140728
  2. SINTROM [Concomitant]
     Active Substance: ACENOCOUMAROL
     Indication: MITRAL VALVE DISEASE

REACTIONS (4)
  - Weight decreased [Not Recovered/Not Resolved]
  - Oesophagitis [Recovered/Resolved]
  - Regurgitation [Recovered/Resolved]
  - Diarrhoea [Not Recovered/Not Resolved]

NARRATIVE: CASE EVENT DATE: 20140723
